FAERS Safety Report 9570828 (Version 1)
Quarter: 2013Q3

REPORT INFORMATION
  Report Type: Spontaneous
  Country: US (occurrence: None)
  Receive Date: 20130927
  Receipt Date: 20130927
  Transmission Date: 20140515
  Serious: Yes (Death, Hospitalization)
  Sender: FDA-Public Use
  Company Number: QSC-2013-0327

PATIENT
  Age: 42 Year
  Sex: Female

DRUGS (5)
  1. H.P. ACTHAR GEL [Suspect]
     Indication: SYSTEMIC LUPUS ERYTHEMATOSUS
     Dosage: 80 UNITS, QW, SUBCUTANEOUS
     Route: 058
     Dates: start: 201209, end: 20130822
  2. CELLCEPT ( MYCOPHENOLATE MOFETIL) [Concomitant]
  3. PREDNISONE ( PREDNISONE) [Concomitant]
  4. SYNTHROID ( LEVOTHYROXINE SODIUM) [Concomitant]
  5. LASIX ( FUROSEMIDE) [Concomitant]

REACTIONS (1)
  - Cerebrovascular accident [None]
